FAERS Safety Report 8446998 (Version 2)
Quarter: 2013Q2

REPORT INFORMATION
  Report Type: Spontaneous
  Country: US (occurrence: None)
  Receive Date: 20120104
  Receipt Date: 20120508
  Transmission Date: 20140414
  Serious: No
  Sender: FDA-Public Use
  Company Number: 2011HGS-002857

PATIENT
  Age: 44 Year
  Sex: Female
  Weight: 120.2 kg

DRUGS (13)
  1. BENLYSTA [Suspect]
     Indication: SYSTEMIC LUPUS ERYTHEMATOSUS
     Dosage: 10 MG/KG, 1 IN 28 D, INTRAVENOUS DRIP
     Route: 041
     Dates: start: 20111026
  2. KLONOPIN [Concomitant]
  3. LISINOPRIL (LISINOPRIL) [Concomitant]
  4. PLAQUENIL (HYDROXYCHLOROQUINE SULFATE) (HYDROXYCHLOROQUINE SULFATE) [Concomitant]
  5. XANAX [Concomitant]
  6. AMBIEN [Concomitant]
  7. ASPIRIN [Concomitant]
  8. ULTRAM (TRAMADOL HYDROCHLORIDE ) (TRAMADOL HYDROCHLORIDE) [Concomitant]
  9. PREDNISONE (PREDNISONE) (PREDNISONE) [Concomitant]
  10. HYDROCHLOROTHIAZIDE (HYDROCHLOROTHIAZIDE) (HYDROCHLOROTHIAZIDE) [Concomitant]
  11. DOXYCYCLINE (DOXYCYCLINE) (DOXYCYCLINE) [Concomitant]
  12. CARTIA (DILTIAZEM HYDROCHLORIDE) (DILTIAZEM HYDROCHLORIDE) [Concomitant]
  13. VICODIN (VICODIN) (PARACETAMOL, HYDROCODONE BITARTRATE) [Concomitant]

REACTIONS (1)
  - ANXIETY [None]
